FAERS Safety Report 6972898-4 (Version None)
Quarter: 2010Q3

REPORT INFORMATION
  Report Type: 
  Country: None (occurrence: None)
  Receive Date: 20100909
  Receipt Date: 20100831
  Transmission Date: 20110219
  Serious: Yes (Other)
  Sender: FDA-Public Use
  Company Number: US-PFIZER INC-2010110227

PATIENT
  Sex: Female

DRUGS (2)
  1. XANAX [Suspect]
     Dosage: UNK
  2. XANAX [Suspect]
     Dosage: 8 MG DAILY

REACTIONS (4)
  - ACTIVITIES OF DAILY LIVING IMPAIRED [None]
  - DRUG DEPENDENCE [None]
  - PAIN [None]
  - ROAD TRAFFIC ACCIDENT [None]
